FAERS Safety Report 24675541 (Version 1)
Quarter: 2024Q4

REPORT INFORMATION
  Report Type: Spontaneous
  Country: QA (occurrence: QA)
  Receive Date: 20241128
  Receipt Date: 20241128
  Transmission Date: 20250115
  Serious: Yes (Hospitalization, Other)
  Sender: PFIZER
  Company Number: QA-PFIZER INC-PV202400153147

PATIENT
  Age: 52 Year
  Sex: Female

DRUGS (1)
  1. LORBRENA [Suspect]
     Active Substance: LORLATINIB
     Indication: Non-small cell lung cancer
     Dosage: 100 MG, 1X/DAY (4TH LINE)
     Dates: start: 202002

REACTIONS (11)
  - Abdominal pain upper [Unknown]
  - Amylase increased [Unknown]
  - Cholelithiasis [Unknown]
  - Cholecystitis [Unknown]
  - Cholangitis [Unknown]
  - Blood cholesterol increased [Unknown]
  - Low density lipoprotein increased [Unknown]
  - Blood triglycerides increased [Unknown]
  - Pleural effusion [Unknown]
  - Liver disorder [Unknown]
  - Biliary tract disorder [Unknown]

NARRATIVE: CASE EVENT DATE: 20210801
